FAERS Safety Report 5869699-7 (Version None)
Quarter: 2008Q3

REPORT INFORMATION
  Report Type: 
  Country: None (occurrence: None)
  Receive Date: 20080904
  Receipt Date: 20080811
  Transmission Date: 20090109
  Serious: Yes (Hospitalization)
  Sender: FDA-Public Use
  Company Number: SE-AVENTIS-200815079GDDC

PATIENT
  Age: 68 Year
  Sex: Male
  Weight: 104.2 kg

DRUGS (9)
  1. GLIMEPIRIDE [Suspect]
     Dosage: DOSE: TITRATED DOSE BETWEEN 1 MG AND 6 MG
     Route: 048
     Dates: start: 20080320, end: 20080521
  2. METFORMIN HCL [Concomitant]
     Dates: start: 20070401, end: 20080406
  3. METFORMIN HCL [Concomitant]
     Dates: start: 20080506
  4. SIMVASTATIN [Concomitant]
     Dates: start: 20070401
  5. ENALAPRIL MALEATE [Concomitant]
     Indication: HYPERTENSION
     Dates: start: 20070401
  6. SELOKEN                            /00376902/ [Concomitant]
     Indication: HYPERTENSION
     Dates: start: 20070401
  7. ASPIRIN [Concomitant]
     Dates: start: 20070401
  8. IMPUGAN [Concomitant]
  9. GLYTRIN [Concomitant]

REACTIONS (1)
  - NYSTAGMUS [None]
